FAERS Safety Report 18462929 (Version 1)
Quarter: 2020Q4

REPORT INFORMATION
  Report Type: Spontaneous
  Country: US (occurrence: US)
  Receive Date: 20201104
  Receipt Date: 20201104
  Transmission Date: 20210114
  Serious: Yes (Other)
  Sender: FDA-Public Use
  Company Number: US-009507513-2011USA001005

PATIENT
  Age: 843 Month
  Sex: Female
  Weight: 85.7 kg

DRUGS (13)
  1. PRINIVIL [Suspect]
     Active Substance: LISINOPRIL
     Dosage: UNK
     Route: 048
  2. UBIDECARENONE. [Concomitant]
     Active Substance: UBIDECARENONE
     Dosage: UNK
  3. CRESTOR [Suspect]
     Active Substance: ROSUVASTATIN CALCIUM
     Dosage: 5 MILLIGRAM, QD
     Route: 048
  4. SCHIFF MEGARED OMEGA-3 KRILL OIL [Concomitant]
     Dosage: UNK
  5. FISH OIL [Concomitant]
     Active Substance: FISH OIL
     Indication: DRY EYE
  6. ASPIRIN. [Concomitant]
     Active Substance: ASPIRIN
     Indication: EYE DISORDER
     Dosage: 81 MILLIGRAM, QD
  7. METOPROLOL SUCCINATE. [Suspect]
     Active Substance: METOPROLOL SUCCINATE
     Dosage: UNK
     Route: 048
  8. VOLTAREN [Concomitant]
     Active Substance: DICLOFENAC SODIUM
  9. TRIAMCINOLONE ACETONIDE. [Concomitant]
     Active Substance: TRIAMCINOLONE ACETONIDE
     Dosage: UNK
  10. CRESTOR [Suspect]
     Active Substance: ROSUVASTATIN CALCIUM
     Indication: BLOOD CHOLESTEROL INCREASED
     Dosage: 5 MILLIGRAM, QD
     Route: 048
     Dates: start: 2018, end: 2018
  11. CRESTOR [Suspect]
     Active Substance: ROSUVASTATIN CALCIUM
     Indication: HYPERCHOLESTEROLAEMIA
     Dosage: 5 MILLIGRAM, QD
     Route: 048
     Dates: start: 20180507, end: 20180510
  12. CHOLECALCIFEROL [Concomitant]
     Active Substance: CHOLECALCIFEROL
  13. CRESTOR [Suspect]
     Active Substance: ROSUVASTATIN CALCIUM
     Dosage: 5 MILLIGRAM, QD
     Route: 048
     Dates: start: 2010, end: 2011

REACTIONS (24)
  - Muscle spasms [Unknown]
  - Dry eye [Unknown]
  - Abdominal discomfort [Unknown]
  - Aphthous ulcer [Unknown]
  - Vitamin D deficiency [Unknown]
  - Gastrooesophageal reflux disease [Unknown]
  - Drug hypersensitivity [Unknown]
  - Gastric disorder [Unknown]
  - Retinal haemorrhage [Recovered/Resolved]
  - Pharyngeal swelling [Recovered/Resolved]
  - Weight increased [Unknown]
  - Muscle discomfort [Unknown]
  - Arthritis [Unknown]
  - Transient ischaemic attack [Unknown]
  - Blood pressure abnormal [Recovered/Resolved]
  - Gastrointestinal disorder [Unknown]
  - Hypoaesthesia oral [Unknown]
  - Myalgia [Unknown]
  - Blood cholesterol increased [Unknown]
  - Cough [Unknown]
  - Drug ineffective [Unknown]
  - Rash [Unknown]
  - Intentional product misuse [Unknown]
  - Ulcer [Recovered/Resolved]

NARRATIVE: CASE EVENT DATE: 201701
